FAERS Safety Report 8557840-7 (Version None)
Quarter: 2012Q3

REPORT INFORMATION
  Report Type: 
  Country: None (occurrence: None)
  Receive Date: 20120801
  Receipt Date: 20120725
  Transmission Date: 20120928
  Serious: Yes (Other)
  Sender: FDA-Public Use
  Company Number: US-GLAXOSMITHKLINE-A0986977A

PATIENT
  Age: 18 Year
  Sex: Male

DRUGS (1)
  1. FLOLAN [Suspect]
     Indication: SCLERODERMA
     Route: 065

REACTIONS (2)
  - MALAISE [None]
  - PANCYTOPENIA [None]
